FAERS Safety Report 9730263 (Version 1)
Quarter: 2013Q4

REPORT INFORMATION
  Report Type: Spontaneous
  Country: US (occurrence: US)
  Receive Date: 20131202
  Receipt Date: 20131202
  Transmission Date: 20140711
  Serious: Yes (Hospitalization)
  Sender: FDA-Public Use
  Company Number: PHHY2013US137701

PATIENT
  Age: 42 Year
  Sex: Female

DRUGS (2)
  1. IMATINIB [Suspect]
     Indication: GASTROINTESTINAL STROMAL TUMOUR
  2. SUNITINIB [Suspect]
     Indication: GASTROINTESTINAL STROMAL TUMOUR

REACTIONS (6)
  - Mental status changes [Unknown]
  - Tumour necrosis [Unknown]
  - Hepatic haemorrhage [Unknown]
  - Peritoneal haemorrhage [Unknown]
  - Hypotension [Unknown]
  - Abdominal pain [Unknown]
